FAERS Safety Report 16122258 (Version 1)
Quarter: 2019Q1

REPORT INFORMATION
  Report Type: Spontaneous
  Country: FR (occurrence: FR)
  Receive Date: 20190327
  Receipt Date: 20190327
  Transmission Date: 20190418
  Serious: Yes (Hospitalization)
  Sender: FDA-Public Use
  Company Number: FR-ACCORD-115951

PATIENT
  Age: 84 Year
  Sex: Male
  Weight: 62.3 kg

DRUGS (11)
  1. SERESTA [Concomitant]
     Active Substance: OXAZEPAM
     Dosage: 10 MG
  2. IMOVANE [Concomitant]
     Active Substance: ZOPICLONE
     Dosage: 7.5 MG
  3. ESCITALOPRAM [Suspect]
     Active Substance: ESCITALOPRAM OXALATE
     Indication: DEPRESSION
     Route: 048
     Dates: start: 20180405, end: 20181120
  4. CANDESARTAN. [Concomitant]
     Active Substance: CANDESARTAN
  5. TENORDATE [Concomitant]
     Active Substance: ATENOLOL\NIFEDIPINE
  6. SEEBRI BREEZHALER [Concomitant]
     Active Substance: GLYCOPYRROLATE
  7. AVODART [Concomitant]
     Active Substance: DUTASTERIDE
     Dosage: 0.50MG
  8. OMEXEL [Concomitant]
     Active Substance: TAMSULOSIN HYDROCHLORIDE
     Dosage: 0.4 MG PROLONGED-RELEASE FILM-COATED TABLET
  9. LASILIX [Concomitant]
     Active Substance: FUROSEMIDE
     Dosage: 40 MG, SCORED TABLET
  10. KARDEGIC [Suspect]
     Active Substance: ASPIRIN DL-LYSINE
     Indication: CEREBROVASCULAR ACCIDENT PROPHYLAXIS
     Dosage: 75 MG IN SACHET-DOSE
     Route: 048
     Dates: start: 2014
  11. SPIRONOLACTONE. [Concomitant]
     Active Substance: SPIRONOLACTONE

REACTIONS (1)
  - Cerebral haemorrhage [Not Recovered/Not Resolved]

NARRATIVE: CASE EVENT DATE: 20181116
